FAERS Safety Report 7074123-5 (Version None)
Quarter: 2010Q4

REPORT INFORMATION
  Report Type: 
  Country: None (occurrence: None)
  Receive Date: 20101029
  Receipt Date: 20101025
  Transmission Date: 20110411
  Serious: No
  Sender: FDA-Public Use
  Company Number: JP-PFIZER INC-2010124496

PATIENT
  Age: 47 Year
  Sex: Male

DRUGS (4)
  1. ZYVOX [Suspect]
     Indication: STAPHYLOCOCCAL OSTEOMYELITIS
     Dosage: 1200 MG, 1X/DAY
     Route: 041
     Dates: start: 20100930
  2. ZYVOX [Suspect]
     Dosage: UNK
     Route: 048
  3. CLINDAMYCIN [Concomitant]
  4. SULFAMETHOXAZOLE AND TRIMETHOPRIM [Concomitant]

REACTIONS (2)
  - DERMATITIS ACNEIFORM [None]
  - INFUSION SITE PAIN [None]
